FAERS Safety Report 5254203-7 (Version None)
Quarter: 2007Q1

REPORT INFORMATION
  Report Type: 
  Country: None (occurrence: None)
  Receive Date: 20070302
  Receipt Date: 20070301
  Transmission Date: 20070707
  Serious: Yes (Other)
  Sender: FDA-Public Use
  Company Number: US-GLAXOSMITHKLINE-A0639656A

PATIENT
  Age: 52 Year
  Sex: Female

DRUGS (2)
  1. NICODERM CQ [Suspect]
     Dosage: 21MG PER DAY
     Route: 062
     Dates: start: 20070205, end: 20070205
  2. UNKNOWN [Concomitant]

REACTIONS (2)
  - ASTHMA [None]
  - MALAISE [None]
